FAERS Safety Report 18921439 (Version 1)
Quarter: 2021Q1

REPORT INFORMATION
  Report Type: Spontaneous
  Country: US (occurrence: US)
  Receive Date: 20210222
  Receipt Date: 20210222
  Transmission Date: 20210420
  Serious: No
  Sender: FDA-Public Use
  Company Number: US-BRISTOL-MYERS SQUIBB COMPANY-BMS-2021-010264

PATIENT
  Sex: Female
  Weight: 113.4 kg

DRUGS (2)
  1. ELIQUIS [Suspect]
     Active Substance: APIXABAN
     Indication: CEREBROVASCULAR ACCIDENT PROPHYLAXIS
     Dosage: UNK
     Route: 065
  2. COVID?19 VACCINE NOS. [Suspect]
     Active Substance: COVID-19 VACCINE NOS
     Indication: COVID-19 IMMUNISATION
     Dosage: ADMINISTERED LEFT UPPER ARM IN THE SHOULDER
     Route: 065
     Dates: start: 20210126

REACTIONS (3)
  - Dizziness [Recovering/Resolving]
  - Chest discomfort [Unknown]
  - Heart rate irregular [Unknown]
